FAERS Safety Report 16089115 (Version 1)
Quarter: 2019Q1

REPORT INFORMATION
  Report Type: Spontaneous
  Country: CN (occurrence: CN)
  Receive Date: 20190319
  Receipt Date: 20190319
  Transmission Date: 20190418
  Serious: Yes (Other)
  Sender: FDA-Public Use
  Company Number: CN-009507513-1903CHN006654

PATIENT
  Age: 51 Year
  Sex: Male

DRUGS (1)
  1. KEYTRUDA [Suspect]
     Active Substance: PEMBROLIZUMAB
     Indication: NEOPLASM MALIGNANT
     Dosage: 100 MILLIGRAM, QD, IVGTT
     Route: 041
     Dates: start: 20190219, end: 20190219

REACTIONS (4)
  - Oxygen therapy [Recovering/Resolving]
  - Interstitial lung disease [Recovering/Resolving]
  - Rash [Recovering/Resolving]
  - Diarrhoea [Recovering/Resolving]

NARRATIVE: CASE EVENT DATE: 20190222
